FAERS Safety Report 4608914-4 (Version None)
Quarter: 2005Q1

REPORT INFORMATION
  Report Type: 
  Country: None (occurrence: None)
  Receive Date: 20050309
  Receipt Date: 20050224
  Transmission Date: 20050727
  Serious: Yes (Hospitalization)
  Sender: FDA-Public Use
  Company Number: 2004229367FR

PATIENT
  Age: 85 Year
  Sex: Female

DRUGS (6)
  1. DELTA-CORTEF [Suspect]
     Indication: ILL-DEFINED DISORDER
     Dosage: SOME DF (PRN), ORAL
     Route: 048
     Dates: start: 20040705, end: 20040711
  2. PANTOPRAZOLE SODIUM [Suspect]
     Indication: ILL-DEFINED DISORDER
     Dosage: SOME DF (PRN), ORAL
     Route: 048
     Dates: start: 20040706, end: 20040711
  3. PIRBUTEROL ACETATE (PIRBUTEROL ACETATE) [Concomitant]
  4. BUDESONIDE (BUDESONIDE) [Concomitant]
  5. SALMETEROL XINAFOATE (SALMETEROL XINAFOATE) [Concomitant]
  6. VERAPAMIL [Concomitant]

REACTIONS (1)
  - HYPONATRAEMIA [None]
